FAERS Safety Report 4333976-1 (Version None)
Quarter: 2004Q2

REPORT INFORMATION
  Report Type: 
  Country: None (occurrence: None)
  Receive Date: 20040402
  Receipt Date: 20040322
  Transmission Date: 20050107
  Serious: Yes (Other)
  Sender: FDA-Public Use
  Company Number: 2003114580

PATIENT
  Age: 74 Year
  Sex: Female
  Weight: 63 kg

DRUGS (10)
  1. ZELDOX [Suspect]
     Indication: DELUSIONAL DISORDER, PERSECUTORY TYPE
     Dosage: 160 MG, ORAL
     Route: 048
     Dates: start: 20030728, end: 20030101
  2. TIAPRIDE HYDROCHLORIDE [Concomitant]
  3. AMLODIPINE BESYLATE [Concomitant]
  4. GLYBURIDE [Concomitant]
  5. ENALAPRIL MALEATE [Concomitant]
  6. DIPIPERON (PIPAMPERONE) [Concomitant]
  7. ADALAT [Concomitant]
  8. RANITIDINE HCL [Concomitant]
  9. CLOZAPINE [Concomitant]
  10. CLONAZEPAM [Concomitant]

REACTIONS (10)
  - BLOOD CREATINE PHOSPHOKINASE INCREASED [None]
  - BODY TEMPERATURE INCREASED [None]
  - DEPRESSED LEVEL OF CONSCIOUSNESS [None]
  - DISTURBANCE IN ATTENTION [None]
  - HEPATIC ENZYME INCREASED [None]
  - MUSCLE RIGIDITY [None]
  - NEUROLEPTIC MALIGNANT SYNDROME [None]
  - RENAL IMPAIRMENT [None]
  - STUPOR [None]
  - SYNCOPE [None]
